FAERS Safety Report 4392093-5 (Version None)
Quarter: 2004Q3

REPORT INFORMATION
  Report Type: 
  Country: None (occurrence: None)
  Receive Date: 20040702
  Receipt Date: 20040702
  Transmission Date: 20050211
  Serious: No
  Sender: FDA-Public Use
  Company Number: None

PATIENT
  Age: 17 Year
  Sex: Female

DRUGS (1)
  1. RITUXIMAB [Suspect]

REACTIONS (4)
  - DYSPNOEA [None]
  - MOUTH HAEMORRHAGE [None]
  - PARAESTHESIA [None]
  - THROAT TIGHTNESS [None]
